FAERS Safety Report 24741310 (Version 2)
Quarter: 2024Q4

REPORT INFORMATION
  Report Type: Report from Study
  Country: CA (occurrence: CA)
  Receive Date: 20241217
  Receipt Date: 20241224
  Transmission Date: 20250115
  Serious: Yes (Hospitalization)
  Sender: ABBVIE
  Company Number: CA-ABBVIE-6041339

PATIENT
  Age: 44 Year
  Sex: Female
  Weight: 86 kg

DRUGS (12)
  1. RISANKIZUMAB [Suspect]
     Active Substance: RISANKIZUMAB
     Indication: Psoriasis
     Route: 058
     Dates: start: 20240515
  2. METHOTREXATE [Concomitant]
     Active Substance: METHOTREXATE
     Indication: Psoriatic arthropathy
     Route: 058
     Dates: start: 202410
  3. METHOTREXATE [Concomitant]
     Active Substance: METHOTREXATE
     Indication: Psoriatic arthropathy
     Route: 058
     Dates: start: 202209, end: 20241003
  4. DESONIDE [Concomitant]
     Active Substance: DESONIDE
     Indication: Psoriasis
     Dosage: DOSE: 1 APPLICATION
     Route: 061
     Dates: start: 202204
  5. CLOBETASOL [Concomitant]
     Active Substance: CLOBETASOL
     Indication: Psoriasis
     Dosage: DOSE: 1 APPLICATION
     Route: 061
     Dates: start: 202204
  6. MAXALT [Concomitant]
     Active Substance: RIZATRIPTAN BENZOATE
     Indication: Migraine
     Dosage: TIME INTERVAL: AS NECESSARY
     Route: 048
     Dates: start: 2005
  7. ACETAMINOPHEN; CODEINE [Concomitant]
     Indication: Migraine
     Dosage: TIME INTERVAL: AS NECESSARY: DOSE: 300/30 MG
     Route: 048
     Dates: start: 2004
  8. ATIVAN [Concomitant]
     Active Substance: LORAZEPAM
     Indication: Anxiety
     Dosage: TIME INTERVAL: AS NECESSARY
     Route: 048
     Dates: start: 202304
  9. CYMBALTA [Concomitant]
     Active Substance: DULOXETINE HYDROCHLORIDE
     Indication: Anxiety
     Route: 048
     Dates: start: 20230927
  10. CELEBREX [Concomitant]
     Active Substance: CELECOXIB
     Indication: Psoriatic arthropathy
     Route: 048
     Dates: start: 202208
  11. PANTOPRAZOLE SODIUM [Concomitant]
     Active Substance: PANTOPRAZOLE SODIUM
     Indication: Gastrooesophageal reflux prophylaxis
     Route: 048
     Dates: start: 202208
  12. FOLIC ACID [Concomitant]
     Active Substance: FOLIC ACID
     Indication: Prophylaxis
     Route: 048
     Dates: start: 202209

REACTIONS (1)
  - Cholelithiasis [Recovered/Resolved]

NARRATIVE: CASE EVENT DATE: 20241007
